FAERS Safety Report 8798617 (Version 1)
Quarter: 2012Q4

REPORT INFORMATION
  Report Type: 
  Country: US (occurrence: US)
  Receive Date: 20120917
  Receipt Date: 20120917
  Transmission Date: 20130627
  Serious: Yes (Other)
  Sender: FDA-Public Use
  Company Number: US-ELI_LILLY_AND_COMPANY-US201209001334

PATIENT
  Age: 67 Year
  Sex: Female
  Weight: 90.7 kg

DRUGS (16)
  1. BYETTA [Suspect]
     Indication: TYPE 2 DIABETES MELLITUS
     Dosage: 5 ug, bid
     Route: 058
     Dates: start: 2007
  2. BYETTA [Suspect]
     Dosage: 10 ug, bid
     Route: 058
  3. BYETTA [Suspect]
     Dosage: 5 ug, bid
     Route: 058
  4. BYETTA [Suspect]
     Dosage: 10 ug, bid
     Route: 058
  5. BYETTA [Suspect]
     Dosage: 5 ug, bid
     Route: 058
  6. METFORMIN [Concomitant]
     Indication: TYPE 2 DIABETES MELLITUS
     Dosage: 1000 mg, bid
     Route: 048
  7. XANAX [Concomitant]
     Indication: ANXIETY
     Dosage: UNK, prn
     Route: 048
  8. HYDROCHLOROTHIAZIDE [Concomitant]
     Indication: BLOOD PRESSURE
     Dosage: 25 mg, qd
     Route: 048
  9. ASPIRIN [Concomitant]
     Indication: CARDIAC DISORDER
     Dosage: 325 mg, qd
     Route: 048
  10. KLONOPIN [Concomitant]
     Indication: NERVOUSNESS
     Dosage: UNK, qd
     Route: 048
  11. KLOR-CON [Concomitant]
     Indication: CARDIAC DISORDER
     Dosage: UNK
  12. ISOSORB                            /00586302/ [Concomitant]
     Dosage: UNK
  13. PLAVIX [Concomitant]
     Dosage: UNK
  14. COREG [Concomitant]
     Indication: CARDIAC DISORDER
     Dosage: UNK
  15. FISH OIL [Concomitant]
     Dosage: UNK
  16. VITAMIN D [Concomitant]
     Dosage: UNK

REACTIONS (8)
  - Cholecystectomy [Recovered/Resolved]
  - Blood glucose abnormal [Not Recovered/Not Resolved]
  - Feeling abnormal [Recovered/Resolved]
  - Weight decreased [Unknown]
  - Blood glucose decreased [Unknown]
  - Nausea [Recovered/Resolved]
  - Feeling jittery [Not Recovered/Not Resolved]
  - Decreased appetite [Recovered/Resolved]
